FAERS Safety Report 8210422-9 (Version None)
Quarter: 2012Q1

REPORT INFORMATION
  Report Type: 
  Country: None (occurrence: None)
  Receive Date: 20120314
  Receipt Date: 20120125
  Transmission Date: 20120608
  Serious: No
  Sender: FDA-Public Use
  Company Number: US-ASTRAZENECA-2011SE78519

PATIENT
  Age: 64 Year
  Sex: Female

DRUGS (2)
  1. METFORMIN [Concomitant]
     Route: 065
  2. TOPROL-XL [Suspect]
     Route: 048

REACTIONS (8)
  - DRUG HYPERSENSITIVITY [None]
  - DRY EYE [None]
  - SWELLING FACE [None]
  - ORAL CANDIDIASIS [None]
  - HAEMOGLOBIN INCREASED [None]
  - GLAUCOMA [None]
  - DIABETES MELLITUS [None]
  - CONSTIPATION [None]
